FAERS Safety Report 16900270 (Version 4)
Quarter: 2022Q1

REPORT INFORMATION
  Report Type: Spontaneous
  Country: JP (occurrence: JP)
  Receive Date: 20191009
  Receipt Date: 20220106
  Transmission Date: 20220424
  Serious: No
  Sender: FDA-Public Use
  Company Number: JP-BAYER-2019-149964

PATIENT
  Age: 5 Decade
  Sex: Female

DRUGS (1)
  1. ADEMPAS [Suspect]
     Active Substance: RIOCIGUAT
     Indication: Pulmonary arterial hypertension
     Dosage: 1.0 MG, TID
     Route: 048
     Dates: start: 20190709

REACTIONS (4)
  - Full blood count abnormal [Recovered/Resolved]
  - White blood cell count decreased [Recovered/Resolved]
  - Headache [Not Recovered/Not Resolved]
  - Intentional product use issue [None]
